FAERS Safety Report 12992464 (Version 1)
Quarter: 2016Q4

REPORT INFORMATION
  Report Type: Spontaneous
  Country: RO (occurrence: RO)
  Receive Date: 20161202
  Receipt Date: 20161202
  Transmission Date: 20170207
  Serious: Yes (Hospitalization, Other)
  Sender: FDA-Public Use
  Company Number: RO-GLENMARK PHARMACEUTICALS S R O-2016GMK025193

PATIENT
  Age: 65 Year

DRUGS (4)
  1. ATORVASTATIN [Interacting]
     Active Substance: ATORVASTATIN
     Indication: PRODUCT USED FOR UNKNOWN INDICATION
     Dosage: UNK
     Route: 065
  2. CLOPIDOGREL [Interacting]
     Active Substance: CLOPIDOGREL BISULFATE
     Dosage: 75 MG, QD
     Route: 065
  3. OMEPRAZOLE. [Suspect]
     Active Substance: OMEPRAZOLE
     Indication: PRODUCT USED FOR UNKNOWN INDICATION
     Dosage: UNK
     Route: 065
  4. CLOPIDOGREL [Interacting]
     Active Substance: CLOPIDOGREL BISULFATE
     Indication: ANTIPLATELET THERAPY
     Dosage: 300 MG, LOADING DOSE
     Route: 065

REACTIONS (8)
  - Drug ineffective [Unknown]
  - Vascular stent occlusion [Recovered/Resolved]
  - Angina pectoris [Recovered/Resolved]
  - Drug resistance [Unknown]
  - Acute myocardial infarction [Recovered/Resolved]
  - Thrombosis [Recovered/Resolved]
  - Vascular stent thrombosis [Recovered/Resolved]
  - Drug interaction [Unknown]
